FAERS Safety Report 21141652 (Version 1)
Quarter: 2022Q3

REPORT INFORMATION
  Report Type: Spontaneous
  Country: GB (occurrence: GB)
  Receive Date: 20220728
  Receipt Date: 20220728
  Transmission Date: 20221027
  Serious: Yes (Other)
  Sender: FDA-Public Use
  Company Number: None

PATIENT
  Age: 90 Year
  Sex: Female

DRUGS (10)
  1. AFLIBERCEPT [Suspect]
     Active Substance: AFLIBERCEPT
     Indication: Neovascular age-related macular degeneration
     Dosage: 50 UL, 1X
     Route: 031
     Dates: start: 20190723, end: 20190723
  2. AFLIBERCEPT [Suspect]
     Active Substance: AFLIBERCEPT
     Dosage: 50 UL, 1X
     Route: 031
     Dates: start: 20190820, end: 20190820
  3. AFLIBERCEPT [Suspect]
     Active Substance: AFLIBERCEPT
     Dosage: 50 UL, 1X
     Route: 031
     Dates: start: 20191119, end: 20191119
  4. AFLIBERCEPT [Suspect]
     Active Substance: AFLIBERCEPT
     Dosage: 50 UL, 1X
     Route: 031
     Dates: start: 20200124, end: 20200124
  5. AFLIBERCEPT [Suspect]
     Active Substance: AFLIBERCEPT
     Dosage: 50 UL, 1X
     Route: 031
     Dates: start: 20200810, end: 20200810
  6. AFLIBERCEPT [Suspect]
     Active Substance: AFLIBERCEPT
     Dosage: 50 UL, 1X
     Route: 031
     Dates: start: 20201005, end: 20201005
  7. AFLIBERCEPT [Suspect]
     Active Substance: AFLIBERCEPT
     Dosage: 50 UL, 1X
     Route: 031
     Dates: start: 20210607, end: 20210607
  8. AFLIBERCEPT [Suspect]
     Active Substance: AFLIBERCEPT
     Dosage: 50 UL, 1X
     Route: 031
     Dates: start: 20210927, end: 20210927
  9. AFLIBERCEPT [Suspect]
     Active Substance: AFLIBERCEPT
     Dosage: 50 UL, 1X
     Route: 031
     Dates: start: 20211206, end: 20211206
  10. AFLIBERCEPT [Suspect]
     Active Substance: AFLIBERCEPT
     Dosage: 50 UL, 1X
     Route: 031
     Dates: start: 20220531, end: 20220531

REACTIONS (1)
  - Neovascular age-related macular degeneration [Not Recovered/Not Resolved]

NARRATIVE: CASE EVENT DATE: 20220214
